FAERS Safety Report 10183033 (Version 2)
Quarter: 2014Q2

REPORT INFORMATION
  Report Type: Spontaneous
  Country: FR (occurrence: FR)
  Receive Date: 20140520
  Receipt Date: 20140520
  Transmission Date: 20141212
  Serious: Yes (Life-Threatening, Other)
  Sender: FDA-Public Use
  Company Number: FR-JNJFOC-20140408585

PATIENT
  Sex: Male

DRUGS (3)
  1. ACTIFED JOUR ET NUIT [Suspect]
     Route: 048
  2. ACTIFED JOUR ET NUIT [Suspect]
     Indication: NASOPHARYNGITIS
     Route: 048
     Dates: start: 20140408
  3. ACTIFED JOUR ET NUIT [Suspect]
     Indication: NASOPHARYNGITIS
     Route: 048
     Dates: start: 20140409, end: 20140409

REACTIONS (3)
  - Anaphylactic shock [Recovered/Resolved]
  - Chest pain [Recovered/Resolved]
  - Hypersensitivity [Recovered/Resolved]
